FAERS Safety Report 14982134 (Version 2)
Quarter: 2018Q2

REPORT INFORMATION
  Report Type: Report from Study
  Country: US (occurrence: US)
  Receive Date: 20180607
  Receipt Date: 20180613
  Transmission Date: 20180711
  Serious: Yes (Other)
  Sender: FDA-Public Use
  Company Number: US-ROCHE-2133270

PATIENT
  Sex: Female

DRUGS (2)
  1. OCREVUS [Suspect]
     Active Substance: OCRELIZUMAB
     Indication: RELAPSING-REMITTING MULTIPLE SCLEROSIS
     Route: 065
     Dates: start: 20180401
  2. OCREVUS [Suspect]
     Active Substance: OCRELIZUMAB
     Route: 065
     Dates: start: 20180414

REACTIONS (6)
  - Rotator cuff syndrome [Unknown]
  - Muscle rupture [Unknown]
  - Upper limb fracture [Unknown]
  - Fall [Unknown]
  - Injury [Recovered/Resolved with Sequelae]
  - Humerus fracture [Unknown]
